FAERS Safety Report 7161839-5 (Version None)
Quarter: 2010Q4

REPORT INFORMATION
  Report Type: 
  Country: None (occurrence: None)
  Receive Date: 20101215
  Receipt Date: 20100704
  Transmission Date: 20110411
  Serious: Yes (Hospitalization, Other)
  Sender: FDA-Public Use
  Company Number: US-PFIZER INC-2010069693

PATIENT
  Sex: Female
  Weight: 71.6 kg

DRUGS (11)
  1. LYRICA [Suspect]
     Indication: NEUROPATHY PERIPHERAL
     Dosage: 50 MG, 3X/DAY
     Route: 048
     Dates: start: 20100401, end: 20100606
  2. LYRICA [Suspect]
     Dosage: UNK
  3. NEURONTIN [Suspect]
     Indication: NEUROPATHY PERIPHERAL
     Dosage: 100 MG, 3X/DAY
     Route: 048
     Dates: start: 20090101, end: 20100101
  4. TOPAMAX [Concomitant]
     Indication: BIPOLAR DISORDER
     Dosage: 150 MG, DAILY
  5. NEXIUM [Concomitant]
     Dosage: UNK
  6. CELEXA [Concomitant]
     Indication: DEPRESSION
     Dosage: 20 MG, DAILY
  7. KLONOPIN [Concomitant]
     Indication: BIPOLAR DISORDER
     Dosage: 1 MG, 3X/DAY
  8. KLONOPIN [Concomitant]
     Indication: ANXIETY
  9. SPIRIVA [Concomitant]
     Indication: BRONCHITIS CHRONIC
     Dosage: UNK
  10. ARTHROTEC [Concomitant]
     Indication: ARTHRITIS
     Dosage: UNK
  11. TRAZODONE [Concomitant]
     Indication: BIPOLAR DISORDER
     Dosage: 75 MG, 1X/DAY
     Route: 048

REACTIONS (11)
  - ABDOMINAL PAIN UPPER [None]
  - BACK PAIN [None]
  - BLOOD POTASSIUM DECREASED [None]
  - BLOOD PRESSURE DECREASED [None]
  - DIARRHOEA [None]
  - EYE DISORDER [None]
  - HEART RATE DECREASED [None]
  - LYMPHADENOPATHY [None]
  - MASS [None]
  - PUNCTATE KERATITIS [None]
  - VISION BLURRED [None]
